FAERS Safety Report 7037576-4 (Version None)
Quarter: 2010Q4

REPORT INFORMATION
  Report Type: 
  Country: None (occurrence: None)
  Receive Date: 20101011
  Receipt Date: 20100927
  Transmission Date: 20110411
  Serious: Yes (Hospitalization, Other)
  Sender: FDA-Public Use
  Company Number: PHEH2006US10894

PATIENT
  Sex: Female
  Weight: 111.11 kg

DRUGS (11)
  1. ZOMETA [Suspect]
     Indication: BREAST CANCER METASTATIC
     Dosage: 4 MG, QMO
     Dates: start: 20050601, end: 20060628
  2. AREDIA [Suspect]
  3. FEMARA [Concomitant]
     Dosage: 2.5 MG, UNK
     Route: 048
     Dates: start: 20050601, end: 20060101
  4. PROVENTIL [Concomitant]
     Dosage: 2 PUFFS PRN
  5. PAXIL [Concomitant]
     Dosage: 40 MG, QD
     Route: 048
  6. DARVOCET-N 100 [Concomitant]
  7. AROMASIN [Concomitant]
  8. CYTOXAN [Concomitant]
  9. METHOTREXATE [Concomitant]
  10. TESTOSTERONE [Concomitant]
  11. MEGACE [Concomitant]

REACTIONS (73)
  - ANXIETY [None]
  - ARTHRALGIA [None]
  - ASTHENIA [None]
  - ASTHMA [None]
  - BACK PAIN [None]
  - BIPOLAR I DISORDER [None]
  - BONE DENSITY DECREASED [None]
  - BONE DISORDER [None]
  - BONE LESION [None]
  - BONE PAIN [None]
  - BONE SCAN ABNORMAL [None]
  - BREAST NECROSIS [None]
  - BRONCHITIS [None]
  - BURSITIS [None]
  - CARBOHYDRATE ANTIGEN 27.29 INCREASED [None]
  - CARDIAC FAILURE CONGESTIVE [None]
  - CENTRAL VENOUS CATHETERISATION [None]
  - CHEST PAIN [None]
  - CHRONIC OBSTRUCTIVE PULMONARY DISEASE [None]
  - CHRONIC SINUSITIS [None]
  - COMPRESSION FRACTURE [None]
  - CONFUSIONAL STATE [None]
  - COSTOCHONDRITIS [None]
  - DECREASED APPETITE [None]
  - DIVERTICULUM INTESTINAL [None]
  - DIZZINESS [None]
  - DRUG ABUSE [None]
  - DYSPNOEA [None]
  - FAILURE TO THRIVE [None]
  - FALL [None]
  - FATIGUE [None]
  - FOOT OPERATION [None]
  - GAIT DISTURBANCE [None]
  - HERPES ZOSTER [None]
  - HOT FLUSH [None]
  - HYPERTENSION [None]
  - HYPERTONIC BLADDER [None]
  - HYPOAESTHESIA [None]
  - HYPOAESTHESIA ORAL [None]
  - HYPOXIA [None]
  - IMPAIRED HEALING [None]
  - INJURY [None]
  - JAW OPERATION [None]
  - JOINT SPRAIN [None]
  - KYPHOSIS [None]
  - MALIGNANT NEOPLASM PROGRESSION [None]
  - METASTASES TO BONE [None]
  - METASTATIC NEOPLASM [None]
  - METASTATIC PAIN [None]
  - MUSCLE STRAIN [None]
  - MUSCULOSKELETAL CHEST PAIN [None]
  - NEPHROLITHIASIS [None]
  - OEDEMA [None]
  - OEDEMA PERIPHERAL [None]
  - OSTEOARTHRITIS [None]
  - OSTEONECROSIS OF JAW [None]
  - PAIN [None]
  - PAIN IN EXTREMITY [None]
  - PATHOLOGICAL FRACTURE [None]
  - PERSONALITY DISORDER [None]
  - PNEUMONIA [None]
  - PRURITUS [None]
  - RECTOCELE [None]
  - RENAL ATROPHY [None]
  - RESORPTION BONE INCREASED [None]
  - SEASONAL ALLERGY [None]
  - SLEEP APNOEA SYNDROME [None]
  - SOMNOLENCE [None]
  - SUICIDAL IDEATION [None]
  - TOOTH ABSCESS [None]
  - TOOTH EXTRACTION [None]
  - UPPER RESPIRATORY TRACT INFECTION [None]
  - VAGINAL HAEMORRHAGE [None]
